FAERS Safety Report 25694791 (Version 1)
Quarter: 2025Q3

REPORT INFORMATION
  Report Type: Spontaneous
  Country: US (occurrence: US)
  Receive Date: 20250818
  Receipt Date: 20250818
  Transmission Date: 20251020
  Serious: Yes (Other)
  Sender: NOVO NORDISK
  Company Number: US-NOVOPROD-1498827

PATIENT
  Age: 56 Year

DRUGS (2)
  1. OZEMPIC [Suspect]
     Active Substance: SEMAGLUTIDE
     Indication: Type 2 diabetes mellitus
     Dates: start: 202201, end: 202303
  2. TRULICITY [Suspect]
     Active Substance: DULAGLUTIDE
     Indication: Type 2 diabetes mellitus
     Dates: start: 202303, end: 202409

REACTIONS (4)
  - Optic ischaemic neuropathy [Not Recovered/Not Resolved]
  - Fall [Not Recovered/Not Resolved]
  - Injury [Not Recovered/Not Resolved]
  - Emotional distress [Not Recovered/Not Resolved]
